FAERS Safety Report 8928996 (Version 1)
Quarter: 2012Q4

REPORT INFORMATION
  Report Type: Report from Study
  Country: CN (occurrence: CN)
  Receive Date: 20121128
  Receipt Date: 20121128
  Transmission Date: 20130627
  Serious: Yes (Hospitalization)
  Sender: FDA-Public Use
  Company Number: CN-BAYER-2012-122186

PATIENT
  Age: 60 Year
  Sex: Male
  Weight: 55 kg

DRUGS (3)
  1. SORAFENIB (RAF KINASE INHIBITOR) [Suspect]
     Indication: GASTRIC CANCER
     Dosage: Daily dose 800 mg
     Dates: start: 20121108, end: 20121119
  2. CISPLATIN [Suspect]
     Indication: GASTRIC CANCER
     Dosage: Daily dose 97.8 mg
     Dates: start: 20121108
  3. CAPECITABINE [Suspect]
     Indication: GASTRIC CANCER
     Dosage: Daily dose 2500 mg
     Dates: start: 20121108, end: 20121119

REACTIONS (1)
  - Intestinal obstruction [Not Recovered/Not Resolved]
